FAERS Safety Report 10078731 (Version 3)
Quarter: 2014Q3

REPORT INFORMATION
  Report Type: Spontaneous
  Country: JP (occurrence: JP)
  Receive Date: 20140415
  Receipt Date: 20140912
  Transmission Date: 20150326
  Serious: Yes (Death, Life-Threatening, Other)
  Sender: FDA-Public Use
  Company Number: JP-PFIZER INC-2014103096

PATIENT
  Age: 74 Year
  Sex: Female
  Weight: 44 kg

DRUGS (11)
  1. FLOMOX [Concomitant]
     Active Substance: CEFCAPENE PIVOXIL HYDROCHLORIDE HYDRATE
     Indication: BRONCHITIS
     Dosage: 300 MG, DAILY
     Route: 048
     Dates: start: 20130930
  2. LOXONIN [Concomitant]
     Active Substance: LOXOPROFEN SODIUM
     Dosage: 60 MG, DAILY
     Route: 048
     Dates: start: 20130930
  3. DEXALTIN [Concomitant]
     Active Substance: DEXAMETHASONE
     Dosage: UNK
     Route: 048
     Dates: start: 20131007
  4. ROCEPHIN [Concomitant]
     Active Substance: CEFTRIAXONE SODIUM
     Dosage: 2 G, DAILY
     Route: 042
     Dates: start: 20131021, end: 20131022
  5. ZOSYN [Suspect]
     Active Substance: PIPERACILLIN SODIUM\TAZOBACTAM SODIUM
     Indication: BRONCHITIS
     Dosage: 4.5 G, 3X/DAY
     Route: 041
     Dates: start: 20131011, end: 20131018
  6. GENINAX [Concomitant]
     Active Substance: GARENOXACIN MESYLATE
     Indication: BRONCHITIS
     Dosage: 400 MG, DAILY
     Route: 048
     Dates: start: 20131007, end: 20131018
  7. BROTIZOLAM [Concomitant]
     Active Substance: BROTIZOLAM
     Dosage: 0.25 MG, DAILY
     Route: 048
     Dates: start: 20131011, end: 20131021
  8. LANSOPRAZOLE. [Concomitant]
     Active Substance: LANSOPRAZOLE
     Dosage: 15 MG, DAILY
     Route: 041
     Dates: start: 20131015, end: 20131021
  9. FLAVITAN [Concomitant]
     Active Substance: FLAVIN ADENINE DINUCLEOTIDE
     Dosage: 3 DF, DAILY
     Route: 048
     Dates: start: 20131007
  10. AZUNOL GARGLE LIQUID [Concomitant]
     Dosage: UNK
     Dates: start: 20131007
  11. SUBVITAN [Concomitant]
     Dosage: 5 ML, DAILY
     Route: 041
     Dates: start: 20131011, end: 20131021

REACTIONS (3)
  - Renal disorder [Recovered/Resolved]
  - Drug eruption [Recovering/Resolving]
  - Acute respiratory failure [Fatal]

NARRATIVE: CASE EVENT DATE: 20131011
